FAERS Safety Report 14750932 (Version 1)
Quarter: 2018Q2

REPORT INFORMATION
  Report Type: Spontaneous
  Country: FR (occurrence: FR)
  Receive Date: 20180412
  Receipt Date: 20180412
  Transmission Date: 20180711
  Serious: Yes (Hospitalization)
  Sender: FDA-Public Use
  Company Number: FR-AUROBINDO-AUR-APL-2018-019070

PATIENT
  Age: 24 Year
  Sex: Female

DRUGS (2)
  1. ALPRAZOLAM. [Suspect]
     Active Substance: ALPRAZOLAM
     Indication: POISONING DELIBERATE
     Dosage: 11.25 GRAM
     Route: 048
     Dates: start: 20180310
  2. AMOXICILLIN. [Suspect]
     Active Substance: AMOXICILLIN
     Indication: POISONING DELIBERATE
     Dosage: 8 GRAM
     Route: 048
     Dates: start: 20180310

REACTIONS (1)
  - Somnolence [Recovered/Resolved]

NARRATIVE: CASE EVENT DATE: 20180310
